FAERS Safety Report 10227532 (Version 1)
Quarter: 2014Q2

REPORT INFORMATION
  Report Type: Spontaneous
  Country: US (occurrence: None)
  Receive Date: 20140609
  Receipt Date: 20140609
  Transmission Date: 20141212
  Serious: Yes (Other)
  Sender: FDA-Public Use
  Company Number: None

PATIENT
  Age: 67 Year
  Sex: Female
  Weight: 110.68 kg

DRUGS (1)
  1. RANEXA [Suspect]
     Indication: CHEST PAIN
     Route: 048
     Dates: start: 20131016, end: 20140310

REACTIONS (3)
  - Fatigue [None]
  - Renal impairment [None]
  - Urine output decreased [None]
